FAERS Safety Report 8421706-3 (Version None)
Quarter: 2012Q2

REPORT INFORMATION
  Report Type: 
  Country: None (occurrence: None)
  Receive Date: 20120608
  Receipt Date: 20110930
  Transmission Date: 20120825
  Serious: No
  Sender: FDA-Public Use
  Company Number: US-GLAXOSMITHKLINE-A0946609A

PATIENT
  Age: 35 Year
  Sex: Female

DRUGS (4)
  1. ALTABAX [Suspect]
     Indication: RASH
     Dosage: 1APP TWICE PER DAY
     Route: 061
     Dates: start: 20110817, end: 20110819
  2. XYZAL [Concomitant]
  3. LEVOXYL [Concomitant]
  4. ANTIBIOTIC [Concomitant]
     Route: 048

REACTIONS (6)
  - BURNING SENSATION [None]
  - FACIAL PAIN [None]
  - BLISTER [None]
  - SWELLING FACE [None]
  - ERYTHEMA [None]
  - PRURITUS [None]
